FAERS Safety Report 7653616-3 (Version None)
Quarter: 2011Q3

REPORT INFORMATION
  Report Type: 
  Country: None (occurrence: None)
  Receive Date: 20110803
  Receipt Date: 20110803
  Transmission Date: 20111222
  Serious: Yes (Life-Threatening)
  Sender: FDA-Public Use
  Company Number: None

PATIENT
  Age: 85 Year
  Sex: Female

DRUGS (1)
  1. PRADAXA [Suspect]
     Dosage: 150 MG
     Route: 048
     Dates: start: 20110725, end: 20110727

REACTIONS (3)
  - LOWER GASTROINTESTINAL HAEMORRHAGE [None]
  - DIZZINESS [None]
  - REFUSAL OF TREATMENT BY PATIENT [None]
